FAERS Safety Report 9707412 (Version 2)
Quarter: 2013Q4

REPORT INFORMATION
  Report Type: Spontaneous
  Country: US (occurrence: US)
  Receive Date: 20131125
  Receipt Date: 20131210
  Transmission Date: 20140711
  Serious: No
  Sender: FDA-Public Use
  Company Number: US-TEVA-374150USA

PATIENT
  Age: 31 Year
  Sex: Female
  Weight: 128.94 kg

DRUGS (4)
  1. PARAGARD 380A [Suspect]
     Indication: CONTRACEPTION
     Route: 015
     Dates: start: 20100714, end: 20121127
  2. PARAGARD 380A [Suspect]
     Route: 015
     Dates: start: 20121127
  3. EFFEXOR [Concomitant]
     Dosage: 150 MILLIGRAM DAILY;
  4. AMBIEN [Concomitant]
     Indication: INSOMNIA

REACTIONS (4)
  - Pelvic pain [Recovered/Resolved]
  - Metrorrhagia [Recovered/Resolved]
  - Device expulsion [Recovered/Resolved]
  - Embedded device [Recovered/Resolved]
